FAERS Safety Report 5188229-9 (Version None)
Quarter: 2006Q4

REPORT INFORMATION
  Report Type: 
  Country: None (occurrence: None)
  Receive Date: 20061221
  Receipt Date: 20061211
  Transmission Date: 20070319
  Serious: Yes (Disabling)
  Sender: FDA-Public Use
  Company Number: PHFR2006GB03623

PATIENT
  Age: 77 Year
  Sex: Female
  Weight: 52 kg

DRUGS (1)
  1. ZOMETA [Suspect]
     Indication: MULTIPLE MYELOMA
     Dosage: 4 MG, QMO
     Dates: start: 20020926, end: 20060317

REACTIONS (1)
  - OSTEONECROSIS [None]
